FAERS Safety Report 4764356-2 (Version None)
Quarter: 2005Q3

REPORT INFORMATION
  Report Type: 
  Country: None (occurrence: None)
  Receive Date: 20050907
  Receipt Date: 20050822
  Transmission Date: 20060218
  Serious: Yes (Other)
  Sender: FDA-Public Use
  Company Number: ACO_0180_2005

PATIENT
  Sex: Male

DRUGS (1)
  1. SIRDALUD [Suspect]
     Dosage: DF

REACTIONS (1)
  - FALL [None]
